FAERS Safety Report 8834556 (Version 1)
Quarter: 2012Q4

REPORT INFORMATION
  Report Type: 
  Country: JP (occurrence: JP)
  Receive Date: 20121010
  Receipt Date: 20121010
  Transmission Date: 20130627
  Serious: Yes (Hospitalization)
  Sender: FDA-Public Use
  Company Number: JP-PFIZER INC-2012248959

PATIENT
  Age: 66 Year
  Sex: Male

DRUGS (9)
  1. CARVEDILOL [Suspect]
     Indication: ATRIAL FIBRILLATION
     Dosage: 2.5 mg, Daily
     Route: 065
  2. AMIODARONE HCL [Interacting]
     Indication: ATRIAL FIBRILLATION
     Dosage: 200 mg, Daily
     Route: 065
  3. AMIODARONE HCL [Interacting]
     Dosage: 100 mg, Daily
     Route: 065
  4. DIGITALIS [Interacting]
     Indication: PRODUCT USED FOR UNKNOWN INDICATION
     Dosage: UNK
     Route: 065
  5. FUROSEMIDE [Concomitant]
     Dosage: UNK
  6. SPIRONOLACTONE [Concomitant]
     Dosage: UNK
  7. METILDIGOXIN [Concomitant]
     Dosage: UNK
  8. ASPARTATE POTASSIUM [Concomitant]
     Dosage: UNK
  9. WARFARIN [Concomitant]
     Dosage: UNK

REACTIONS (7)
  - Electrocardiogram T wave abnormal [Recovered/Resolved]
  - Atrioventricular block complete [Recovered/Resolved]
  - Drug interaction [Unknown]
  - Electrocardiogram QT prolonged [Recovering/Resolving]
  - Bradycardia [Unknown]
  - Torsade de pointes [Recovered/Resolved]
  - Syncope [Unknown]
